FAERS Safety Report 20364414 (Version 1)
Quarter: 2022Q1

REPORT INFORMATION
  Report Type: Spontaneous
  Country: US (occurrence: US)
  Receive Date: 20220121
  Receipt Date: 20220121
  Transmission Date: 20220423
  Serious: No
  Sender: FDA-Public Use
  Company Number: US-BAXTER-2022BAX001298

PATIENT
  Sex: Female

DRUGS (1)
  1. NITROGLYCERIN IN DEXTROSE [Suspect]
     Active Substance: NITROGLYCERIN
     Indication: Product used for unknown indication
     Route: 042
     Dates: start: 20220112

REACTIONS (2)
  - Device infusion issue [Unknown]
  - Blood pressure decreased [Unknown]

NARRATIVE: CASE EVENT DATE: 20220112
